FAERS Safety Report 22386306 (Version 2)
Quarter: 2023Q2

REPORT INFORMATION
  Report Type: Report from Study
  Country: CA (occurrence: CA)
  Receive Date: 20230530
  Receipt Date: 20230627
  Transmission Date: 20230722
  Serious: Yes (Other)
  Sender: FDA-Public Use
  Company Number: CA-ABBVIE-5184648

PATIENT
  Sex: Male

DRUGS (2)
  1. RINVOQ [Suspect]
     Active Substance: UPADACITINIB
     Indication: Colitis ulcerative
     Dosage: 45MG ONCE DAILY FOR FIRST 8 WEEKS, THEN 30MG ONCE DAILY
     Route: 048
     Dates: start: 20230428, end: 2023
  2. RINVOQ [Suspect]
     Active Substance: UPADACITINIB
     Indication: Colitis ulcerative
     Route: 048
     Dates: start: 2023

REACTIONS (3)
  - Tonsillectomy [Unknown]
  - Erythema [Unknown]
  - Systemic lupus erythematosus rash [Recovering/Resolving]

NARRATIVE: CASE EVENT DATE: 20230101
